FAERS Safety Report 8008072-2 (Version None)
Quarter: 2011Q4

REPORT INFORMATION
  Report Type: 
  Country: None (occurrence: None)
  Receive Date: 20111227
  Receipt Date: 20111215
  Transmission Date: 20120403
  Serious: Yes (Other)
  Sender: FDA-Public Use
  Company Number: US-ASTRAZENECA-2011SE76234

PATIENT
  Age: 58 Year
  Sex: Male

DRUGS (3)
  1. NIASPAN [Concomitant]
  2. PLAVIX [Concomitant]
  3. CRESTOR [Suspect]
     Route: 048

REACTIONS (2)
  - COAGULOPATHY [None]
  - CARDIAC FUNCTION DISTURBANCE POSTOPERATIVE [None]
